FAERS Safety Report 5069541-0 (Version None)
Quarter: 2006Q3

REPORT INFORMATION
  Report Type: 
  Country: None (occurrence: None)
  Receive Date: 20060803
  Receipt Date: 20060710
  Transmission Date: 20061208
  Serious: Yes (Hospitalization)
  Sender: FDA-Public Use
  Company Number: FR-AVENTIS-200612468FR

PATIENT
  Age: 62 Year
  Sex: Male
  Weight: 73 kg

DRUGS (6)
  1. TAXOTERE [Suspect]
     Indication: DRUG USE FOR UNKNOWN INDICATION
     Route: 042
     Dates: start: 20060505, end: 20060505
  2. TAXOTERE [Suspect]
     Route: 042
     Dates: start: 20060529, end: 20060529
  3. TAXOTERE [Suspect]
     Route: 042
     Dates: start: 20060623, end: 20060623
  4. SOLU-MEDROL [Concomitant]
     Indication: PREMEDICATION
     Route: 042
     Dates: start: 20060623, end: 20060623
  5. SOLUPRED [Concomitant]
     Indication: PREMEDICATION
     Route: 048
     Dates: start: 20060622, end: 20060622
  6. ZOPHREN [Concomitant]
     Indication: PREMEDICATION
     Route: 042
     Dates: start: 20060623, end: 20060623

REACTIONS (3)
  - HYPERHIDROSIS [None]
  - HYPERTENSION [None]
  - HYPERVENTILATION [None]
